FAERS Safety Report 13942854 (Version 4)
Quarter: 2017Q4

REPORT INFORMATION
  Report Type: Report from Study
  Country: None (occurrence: CA)
  Receive Date: 20170907
  Receipt Date: 20171023
  Transmission Date: 20180320
  Serious: Yes (Hospitalization, Other)
  Sender: FDA-Public Use
  Company Number: CA-ABBVIE-17P-028-2094841-00

PATIENT
  Age: 44 Year
  Sex: Male
  Weight: 74.91 kg

DRUGS (1)
  1. HOLKIRA PAK [Suspect]
     Active Substance: DASABUVIR\OMBITASVIR\PARITAPREVIR\RITONAVIR
     Indication: HEPATITIS C
     Dosage: 2 HOLKIRA PAK 12.5/75/50 MG TABLETS?ONCE DAILY AND 1 DASABUVIR 250 MG TABLET TWICE DAILY
     Route: 048
     Dates: start: 20161105, end: 20170127

REACTIONS (1)
  - Salivary gland neoplasm [Recovered/Resolved]
